FAERS Safety Report 5679559-2 (Version None)
Quarter: 2008Q1

REPORT INFORMATION
  Report Type: 
  Country: None (occurrence: None)
  Receive Date: 20080324
  Receipt Date: 20080314
  Transmission Date: 20080703
  Serious: Yes (Other)
  Sender: FDA-Public Use
  Company Number: US022994

PATIENT
  Sex: Female

DRUGS (8)
  1. GABITRIL [Suspect]
     Dosage: 4 MG, 4 MG TO 8MG DAILY ORAL
     Route: 048
  2. GABITRIL [Suspect]
     Dosage: 4 MG QID ORAL
     Route: 048
  3. ZANAFLEX [Concomitant]
  4. CYMBALTA [Concomitant]
  5. LYRICA [Concomitant]
  6. ADDERALL 10 [Concomitant]
  7. PREDNISONE [Concomitant]
  8. HYDROCODONE BITARTRATE [Concomitant]

REACTIONS (7)
  - CEREBROVASCULAR ACCIDENT [None]
  - CONVULSION [None]
  - DIZZINESS [None]
  - DYSARTHRIA [None]
  - HEAD TITUBATION [None]
  - MUSCLE SPASMS [None]
  - ORAL DISORDER [None]
